FAERS Safety Report 4634338-X (Version None)
Quarter: 2005Q2

REPORT INFORMATION
  Report Type: 
  Country: None (occurrence: None)
  Receive Date: 20050411
  Receipt Date: 20050401
  Transmission Date: 20051028
  Serious: Yes (Disabling, Other)
  Sender: FDA-Public Use
  Company Number: 2005054338

PATIENT
  Sex: Male
  Weight: 110 kg

DRUGS (4)
  1. ATORVASTATIN CALCIUM [Suspect]
     Indication: MYOCARDIAL ISCHAEMIA
     Dosage: (20 MG), ORAL
     Route: 048
     Dates: start: 20030904, end: 20050121
  2. CLOPIDOGREL BISULFATE [Suspect]
     Indication: STENT PLACEMENT
     Dosage: (70 MG), ORAL
     Route: 048
     Dates: start: 20040308, end: 20050305
  3. RAMIPRIL [Concomitant]
  4. ASPIRIN [Concomitant]

REACTIONS (3)
  - MUSCLE FATIGUE [None]
  - MYALGIA [None]
  - RHABDOMYOLYSIS [None]
